FAERS Safety Report 17013102 (Version 1)
Quarter: 2019Q4

REPORT INFORMATION
  Report Type: Spontaneous
  Country: US (occurrence: US)
  Receive Date: 20191001
  Receipt Date: 20191001
  Transmission Date: 20200122
  Serious: Yes (Hospitalization)
  Sender: FDA-Public Use
  Company Number: None

PATIENT
  Age: 58 Year
  Sex: Male
  Weight: 73.03 kg

DRUGS (1)
  1. CLOZAPINE (ACTAVIS) [Suspect]
     Active Substance: CLOZAPINE
     Indication: SCHIZOPHRENIA
     Route: 048
     Dates: start: 20131024

REACTIONS (2)
  - Intestinal obstruction [None]
  - Ileus [None]

NARRATIVE: CASE EVENT DATE: 20190507
